FAERS Safety Report 6221108-4 (Version None)
Quarter: 2009Q2

REPORT INFORMATION
  Report Type: 
  Country: None (occurrence: None)
  Receive Date: 20090610
  Receipt Date: 20090605
  Transmission Date: 20091009
  Serious: Yes (Disabling)
  Sender: FDA-Public Use
  Company Number: B0577390A

PATIENT
  Age: 72 Year
  Sex: Female
  Weight: 74 kg

DRUGS (3)
  1. AMOXICILLIN AND CLAVULANATE POTASSIUM [Suspect]
     Indication: INFECTION
     Route: 048
     Dates: start: 20090327, end: 20090405
  2. TRIMOVATE [Concomitant]
     Indication: RASH
     Dosage: 2 PER DAY
     Route: 061
     Dates: start: 20090319
  3. METRONIDAZOLE [Concomitant]
     Indication: INFECTION
     Dosage: 1200MG PER DAY
     Route: 048
     Dates: start: 20090331, end: 20090406

REACTIONS (4)
  - JAUNDICE [None]
  - LETHARGY [None]
  - LIVER INJURY [None]
  - PRURITUS [None]
